FAERS Safety Report 16664352 (Version 3)
Quarter: 2019Q3

REPORT INFORMATION
  Report Type: Report from Study
  Country: US (occurrence: US)
  Receive Date: 20190802
  Receipt Date: 20190924
  Transmission Date: 20191004
  Serious: Yes (Hospitalization)
  Sender: FDA-Public Use
  Company Number: US-EXELIXIS-CABO-19022894

PATIENT
  Age: 90 Year
  Sex: Male

DRUGS (3)
  1. CABOMETYX [Suspect]
     Active Substance: CABOZANTINIB S-MALATE
     Dosage: 60 MG, QD (PM WITHOUT FOOD)
     Dates: start: 20190821
  2. METFORMIN [Concomitant]
     Active Substance: METFORMIN HYDROCHLORIDE
  3. CABOMETYX [Suspect]
     Active Substance: CABOZANTINIB S-MALATE
     Indication: HEPATIC CANCER
     Dosage: 60 MG, QD (AM WITHOUT FOOD)
     Dates: start: 20190706, end: 20190718

REACTIONS (7)
  - Asthenia [Unknown]
  - Blood pressure increased [Unknown]
  - Gait disturbance [Unknown]
  - Ascites [Not Recovered/Not Resolved]
  - Hypersomnia [Unknown]
  - Urinary tract infection [Recovered/Resolved]
  - Blood bilirubin abnormal [Unknown]

NARRATIVE: CASE EVENT DATE: 201907
